FAERS Safety Report 4933303-2 (Version None)
Quarter: 2006Q1

REPORT INFORMATION
  Report Type: 
  Country: None (occurrence: None)
  Receive Date: 20060306
  Receipt Date: 20051024
  Transmission Date: 20060701
  Serious: Yes (Disabling, Other)
  Sender: FDA-Public Use
  Company Number: FR-BRISTOL-MYERS SQUIBB COMPANY-13157037

PATIENT
  Age: 9 Year
  Sex: Male

DRUGS (3)
  1. AMIKLIN INJ [Suspect]
     Indication: PYELONEPHRITIS
     Dosage: TREATED AGAIN YEARS LATER
     Dates: start: 19960416, end: 19960417
  2. AMIKLIN INJ [Suspect]
     Indication: ACUTE SINUSITIS
     Dosage: TREATED AGAIN YEARS LATER
     Dates: start: 19960416, end: 19960417
  3. ROCEPHIN [Suspect]
     Indication: PYELONEPHRITIS
     Dates: start: 19960416, end: 19960401

REACTIONS (4)
  - AUTISM [None]
  - DEAFNESS [None]
  - MENTAL IMPAIRMENT [None]
  - SPEECH DISORDER [None]
